FAERS Safety Report 7202359-9 (Version None)
Quarter: 2010Q4

REPORT INFORMATION
  Report Type: 
  Country: None (occurrence: None)
  Receive Date: 20101229
  Receipt Date: 20101214
  Transmission Date: 20110411
  Serious: No
  Sender: FDA-Public Use
  Company Number: US-PFIZER INC-2010172974

PATIENT
  Age: 63 Year
  Sex: Female
  Weight: 63.492 kg

DRUGS (5)
  1. ADVIL CONGESTION RELIEF [Suspect]
     Dosage: UNK
     Route: 048
     Dates: start: 20101211
  2. ONE-A-DAY [Concomitant]
  3. CALCIUM [Concomitant]
  4. ASCORBIC ACID [Concomitant]
  5. FISH OIL [Concomitant]
     Dosage: AS NEEDED

REACTIONS (1)
  - DRUG EFFECT DECREASED [None]
